FAERS Safety Report 9920802 (Version 6)
Quarter: 2019Q3

REPORT INFORMATION
  Report Type: Report from Study
  Country: US (occurrence: US)
  Receive Date: 20140224
  Receipt Date: 20190927
  Transmission Date: 20191005
  Serious: Yes (Hospitalization, Other)
  Sender: FDA-Public Use
  Company Number: US-BRISTOL-MYERS SQUIBB COMPANY-17029083

PATIENT
  Age: 72 Year
  Sex: Male
  Weight: 83.6 kg

DRUGS (22)
  1. AMOXICILLIN. [Concomitant]
     Active Substance: AMOXICILLIN
     Indication: UPPER-AIRWAY COUGH SYNDROME
     Dosage: 1000 MG, BID
     Route: 048
     Dates: start: 20120922, end: 20120930
  2. ALEVE [Concomitant]
     Active Substance: NAPROXEN SODIUM
     Indication: PAIN
     Dosage: PRN
     Route: 048
     Dates: start: 20120822, end: 20120927
  3. NYSTATIN. [Concomitant]
     Active Substance: NYSTATIN
     Indication: ORAL CANDIDIASIS
     Dosage: 1DF= 100,000 UNITS/ML, 5MLX4 TIMES PER DAY X 7 DAYS
     Route: 048
  4. AMPICILLIN [Concomitant]
     Active Substance: AMPICILLIN
     Indication: PRODUCT USED FOR UNKNOWN INDICATION
     Dosage: INJECTION
     Route: 065
  5. HEPARIN [Concomitant]
     Active Substance: HEPARIN SODIUM
     Indication: PRODUCT USED FOR UNKNOWN INDICATION
     Dosage: 1 DF=5000 UNITS/ML
     Route: 058
  6. NIVOLUMAB [Suspect]
     Active Substance: NIVOLUMAB
     Indication: MALIGNANT MELANOMA
     Dosage: DOSAGE:1MG/KG;LAST DOSE 13NOV12
     Route: 042
     Dates: start: 20120928
  7. SOLU-MEDROL [Concomitant]
     Active Substance: METHYLPREDNISOLONE SODIUM SUCCINATE
     Indication: ADRENAL INSUFFICIENCY
     Dosage: 1 MG/KG, INTERMITTENT
     Route: 042
     Dates: start: 20121006, end: 20121007
  8. AMBIEN [Concomitant]
     Active Substance: ZOLPIDEM TARTRATE
     Indication: INSOMNIA
     Dosage: 5 MG, INTERMITTENT
     Route: 048
     Dates: start: 20121006, end: 20121006
  9. FERROUS SULFATE. [Concomitant]
     Active Substance: FERROUS SULFATE
     Indication: PRODUCT USED FOR UNKNOWN INDICATION
     Dosage: 325 MG, TID
     Route: 048
  10. MULTIVITAMINS [Concomitant]
     Active Substance: VITAMINS
     Indication: PRODUCT USED FOR UNKNOWN INDICATION
     Dosage: 1 DF=1 TAB
     Route: 048
  11. SIMVASTATIN. [Concomitant]
     Active Substance: SIMVASTATIN
     Indication: PRODUCT USED FOR UNKNOWN INDICATION
     Dosage: 20 MG, QD
     Route: 065
  12. PANTOPRAZOLE [Concomitant]
     Active Substance: PANTOPRAZOLE
     Indication: PRODUCT USED FOR UNKNOWN INDICATION
     Dosage: 40 MG, QD
     Route: 065
  13. CEFTRIAXONE. [Concomitant]
     Active Substance: CEFTRIAXONE
     Indication: BLOOD CULTURE POSITIVE
     Dosage: UNK
     Route: 042
     Dates: start: 20121020, end: 20121022
  14. TAMSULOSIN [Concomitant]
     Active Substance: TAMSULOSIN
     Indication: PRODUCT USED FOR UNKNOWN INDICATION
     Dosage: ALSO 0.4 MG CAPSULE 2TABS/DAY
     Route: 048
  15. PREDNISONE. [Concomitant]
     Active Substance: PREDNISONE
     Indication: PRODUCT USED FOR UNKNOWN INDICATION
     Dosage: 1 DF=(5 MG TABLET) 1.5 TABLET PER DAY
     Route: 048
  16. OXYCONTIN [Concomitant]
     Active Substance: OXYCODONE HYDROCHLORIDE
     Indication: PRODUCT USED FOR UNKNOWN INDICATION
     Dosage: EXT. RELEASE, TITRATE DOWN AS TOLERATED
     Route: 048
  17. FAMOTIDINE. [Concomitant]
     Active Substance: FAMOTIDINE
     Indication: PRODUCT USED FOR UNKNOWN INDICATION
     Dosage: 40 MG, QD
     Route: 065
  18. MORPHINE [Concomitant]
     Active Substance: MORPHINE
     Indication: PAIN
     Dosage: 5MG/ML AS NEEDED
     Route: 065
  19. SYNTHROID [Concomitant]
     Active Substance: LEVOTHYROXINE SODIUM
     Indication: PRODUCT USED FOR UNKNOWN INDICATION
     Dosage: 75 ?G, QD
     Route: 048
  20. ACETAMINOPHEN. [Concomitant]
     Active Substance: ACETAMINOPHEN
     Indication: HEADACHE
     Dosage: 650 MG, PRN
     Route: 048
     Dates: start: 20121005, end: 20121005
  21. COLACE [Concomitant]
     Active Substance: DOCUSATE SODIUM
     Indication: PRODUCT USED FOR UNKNOWN INDICATION
     Dosage: 100 MG, BID
     Route: 048
  22. OXYCODONE [Concomitant]
     Active Substance: OXYCODONE
     Indication: PAIN
     Dosage: 10MG MILD PAIN, 15MG MOD.PAIN, 20MG SEVERE PAIN, AS NEEDED
     Route: 048

REACTIONS (7)
  - Pyrexia [Recovered/Resolved]
  - Sepsis [Recovered/Resolved]
  - Anaemia [Recovered/Resolved]
  - Arthralgia [Recovered/Resolved]
  - Device related infection [Recovered/Resolved]
  - Abdominal pain [Recovered/Resolved]
  - Hypophysitis [Recovered/Resolved]

NARRATIVE: CASE EVENT DATE: 20121005
